FAERS Safety Report 20181698 (Version 1)
Quarter: 2021Q4

REPORT INFORMATION
  Report Type: Spontaneous
  Country: US (occurrence: None)
  Receive Date: 20211214
  Receipt Date: 20211214
  Transmission Date: 20220303
  Serious: Yes (Hospitalization)
  Sender: FDA-Public Use
  Company Number: None

PATIENT
  Sex: Male

DRUGS (1)
  1. CAPECITABINE [Suspect]
     Active Substance: CAPECITABINE
     Indication: Small intestine carcinoma
     Route: 048
     Dates: start: 20210722

REACTIONS (4)
  - Nonspecific reaction [None]
  - Intentional product use issue [None]
  - Diarrhoea [None]
  - Nausea [None]
